FAERS Safety Report 6878748-9 (Version None)
Quarter: 2010Q3

REPORT INFORMATION
  Report Type: 
  Country: None (occurrence: None)
  Receive Date: 20100727
  Receipt Date: 20100716
  Transmission Date: 20110219
  Serious: Yes (Hospitalization)
  Sender: FDA-Public Use
  Company Number: FR-ABBOTT-10P-056-0658323-00

PATIENT
  Sex: Female
  Weight: 46 kg

DRUGS (4)
  1. HUMIRA [Suspect]
     Indication: CROHN'S DISEASE
     Dates: start: 20100429
  2. XATRAL [Concomitant]
     Indication: PRODUCT USED FOR UNKNOWN INDICATION
     Route: 048
     Dates: start: 20100429
  3. TIBERAL [Concomitant]
     Indication: PRODUCT USED FOR UNKNOWN INDICATION
     Route: 048
  4. CIFLOX [Concomitant]
     Indication: PRODUCT USED FOR UNKNOWN INDICATION
     Dosage: 500MG X 2 DAILY
     Route: 048
     Dates: end: 20100604

REACTIONS (6)
  - ANAL FISSURE [None]
  - DECREASED APPETITE [None]
  - GENERAL PHYSICAL CONDITION ABNORMAL [None]
  - PROCTALGIA [None]
  - RASH [None]
  - VIRAL TONSILLITIS [None]
